FAERS Safety Report 9681250 (Version 1)
Quarter: 2013Q4

REPORT INFORMATION
  Report Type: Spontaneous
  Country: US (occurrence: None)
  Receive Date: 20131108
  Receipt Date: 20131108
  Transmission Date: 20140711
  Serious: Yes (Hospitalization, Other)
  Sender: FDA-Public Use
  Company Number: None

PATIENT
  Age: 49 Year
  Sex: Male
  Weight: 70.76 kg

DRUGS (1)
  1. BOTOX [Suspect]
     Indication: OROMANDIBULAR DYSTONIA
     Dosage: 200U
     Dates: start: 20130709

REACTIONS (8)
  - Influenza like illness [None]
  - Hyperhidrosis [None]
  - Lacrimation increased [None]
  - Constipation [None]
  - Urinary tract infection [None]
  - Depression [None]
  - Anxiety [None]
  - Insomnia [None]
